FAERS Safety Report 9753878 (Version 3)
Quarter: 2015Q3

REPORT INFORMATION
  Report Type: Spontaneous
  Country: US (occurrence: US)
  Receive Date: 20131213
  Receipt Date: 20150805
  Transmission Date: 20151125
  Serious: No
  Sender: FDA-Public Use
  Company Number: US-GILEAD-2010-0027010

PATIENT
  Age: 63 Year
  Sex: Female
  Weight: 86.64 kg

DRUGS (10)
  1. SPIRIVA [Concomitant]
     Active Substance: TIOTROPIUM BROMIDE MONOHYDRATE
  2. LETAIRIS [Suspect]
     Active Substance: AMBRISENTAN
     Indication: PULMONARY ARTERIAL HYPERTENSION
     Route: 048
     Dates: start: 20091014, end: 20100127
  3. ACTONEL [Concomitant]
     Active Substance: RISEDRONATE SODIUM
  4. AMBIEN [Concomitant]
     Active Substance: ZOLPIDEM TARTRATE
  5. PREDNISONE. [Concomitant]
     Active Substance: PREDNISONE
  6. ADVAIR HFA [Concomitant]
     Active Substance: FLUTICASONE PROPIONATE\SALMETEROL XINAFOATE
  7. SULFASALAZINE DELAYED-RELEASE [Concomitant]
     Active Substance: SULFASALAZINE
  8. SINGULAIR [Concomitant]
     Active Substance: MONTELUKAST SODIUM
  9. RHINOCORT [Concomitant]
     Active Substance: BUDESONIDE
  10. FERROUS [Concomitant]
     Active Substance: FERROUS SULFATE\GLYCINE

REACTIONS (3)
  - Dyspnoea [Recovered/Resolved]
  - Oedema peripheral [Recovered/Resolved]
  - No therapeutic response [Recovered/Resolved]

NARRATIVE: CASE EVENT DATE: 20091220
